FAERS Safety Report 4398484-0 (Version None)
Quarter: 2004Q3

REPORT INFORMATION
  Report Type: 
  Country: None (occurrence: None)
  Receive Date: 20040712
  Receipt Date: 20040630
  Transmission Date: 20050211
  Serious: No
  Sender: FDA-Public Use
  Company Number: 04H-216-0265768-00

PATIENT
  Sex: 0

DRUGS (2)
  1. HEPARIN SODIUM [Suspect]
     Indication: MYOCARDIAL INFARCTION
  2. STREPTOKINASE [Suspect]
     Indication: MYOCARDIAL INFARCTION

REACTIONS (2)
  - ATRIOVENTRICULAR BLOCK COMPLETE [None]
  - ATRIOVENTRICULAR BLOCK SECOND DEGREE [None]
